FAERS Safety Report 25716518 (Version 4)
Quarter: 2025Q4

REPORT INFORMATION
  Report Type: Spontaneous
  Country: JP (occurrence: JP)
  Receive Date: 20250822
  Receipt Date: 20251127
  Transmission Date: 20260117
  Serious: Yes (Hospitalization)
  Sender: ABBVIE
  Company Number: JP-ABBVIE-6335980

PATIENT
  Age: 48 Year
  Sex: Male
  Weight: 68 kg

DRUGS (8)
  1. RINVOQ [Suspect]
     Active Substance: UPADACITINIB
     Indication: Colitis ulcerative
     Dosage: FORM STRENGTH: 45 MILLIGRAM
     Route: 048
     Dates: start: 20250422, end: 20250617
  2. RINVOQ [Suspect]
     Active Substance: UPADACITINIB
     Indication: Colitis ulcerative
     Dosage: FORM STRENGTH: 45 MILLIGRAM?STOP DATE TEXT: DECREASED
     Route: 048
     Dates: start: 20250701
  3. RINVOQ [Suspect]
     Active Substance: UPADACITINIB
     Indication: Colitis ulcerative
     Dosage: 30 MILLIGRAM, DOSE WAS REDUCED
     Route: 048
     Dates: start: 20250805
  4. LOXOPROFEN SODIUM DIHYDRATE [Concomitant]
     Active Substance: LOXOPROFEN SODIUM DIHYDRATE
     Indication: Headache
     Route: 048
     Dates: start: 20250613
  5. BETAMETHASONE SODIUM PHOSPHATE [Concomitant]
     Active Substance: BETAMETHASONE SODIUM PHOSPHATE
     Indication: Uveitis
     Dosage: OPHTHALMIC
  6. SULFASALAZINE [Suspect]
     Active Substance: SULFASALAZINE
     Indication: Colitis ulcerative
     Dosage: TIME INTERVAL: 0.33333333 DAYS: 3000 MILLIGRAM
     Route: 048
     Dates: start: 20250510, end: 20250617
  7. MESALAMINE [Concomitant]
     Active Substance: MESALAMINE
     Indication: Colitis ulcerative
     Dosage: 1 GRAM
     Route: 054
     Dates: start: 20250527
  8. Brimonidine tartrate; Brinzolamide [Concomitant]
     Indication: Uveitis
     Dosage: OPHTHALMIC

REACTIONS (17)
  - Lymphadenopathy [Recovering/Resolving]
  - Liver disorder [Recovering/Resolving]
  - Headache [Recovering/Resolving]
  - Infectious mononucleosis [Unknown]
  - Bladder hypertrophy [Recovered/Resolved]
  - Mobility decreased [Unknown]
  - Diverticulum intestinal [Unknown]
  - Immunosuppression [Unknown]
  - Epstein-Barr virus infection [Unknown]
  - Malaise [Recovered/Resolved]
  - White blood cell count increased [Unknown]
  - Pulmonary imaging procedure abnormal [Unknown]
  - Gallbladder oedema [Unknown]
  - Dyslipidaemia [Unknown]
  - Autoimmune disorder [Unknown]
  - Lymphatic system neoplasm [Unknown]
  - Periportal oedema [Unknown]

NARRATIVE: CASE EVENT DATE: 20250101
